FAERS Safety Report 24665282 (Version 1)
Quarter: 2024Q4

REPORT INFORMATION
  Report Type: Spontaneous
  Country: JP (occurrence: JP)
  Receive Date: 20241126
  Receipt Date: 20241126
  Transmission Date: 20250115
  Serious: Yes (Other)
  Sender: ACCORD
  Company Number: JP-MLMSERVICE-20241108-PI251363-00306-1

PATIENT
  Age: 21 Year
  Sex: Male

DRUGS (9)
  1. METHOTREXATE [Suspect]
     Active Substance: METHOTREXATE
     Indication: Prophylaxis against graft versus host disease
  2. TACROLIMUS [Suspect]
     Active Substance: TACROLIMUS
     Indication: Prophylaxis against graft versus host disease
     Dosage: DOSE REDUCTION
  3. BECLOMETHASONE DIPROPIONATE [Suspect]
     Active Substance: BECLOMETHASONE DIPROPIONATE
     Indication: Acute graft versus host disease in skin
  4. CYTARABINE [Suspect]
     Active Substance: CYTARABINE
     Indication: Bone marrow conditioning regimen
  5. CYCLOPHOSPHAMIDE [Suspect]
     Active Substance: CYCLOPHOSPHAMIDE
     Indication: Bone marrow conditioning regimen
  6. PREDNISOLONE [Suspect]
     Active Substance: PREDNISOLONE
     Indication: Acute graft versus host disease in skin
     Dosage: DOSE REDUCTION
  7. PREDNISOLONE [Suspect]
     Active Substance: PREDNISOLONE
     Indication: Graft versus host disease in gastrointestinal tract
     Dosage: DOSE REDUCTION
  8. BECLOMETHASONE DIPROPIONATE [Suspect]
     Active Substance: BECLOMETHASONE DIPROPIONATE
     Indication: Graft versus host disease in gastrointestinal tract
  9. TACROLIMUS [Suspect]
     Active Substance: TACROLIMUS
     Indication: Chronic graft versus host disease in skin
     Dosage: DOSE REDUCTION

REACTIONS (3)
  - Cytomegalovirus infection [Recovered/Resolved]
  - Tubulointerstitial nephritis [Recovering/Resolving]
  - Chronic kidney disease [Recovering/Resolving]
